FAERS Safety Report 6172137-0 (Version None)
Quarter: 2009Q2

REPORT INFORMATION
  Report Type: 
  Country: None (occurrence: None)
  Receive Date: 20090427
  Receipt Date: 20090427
  Transmission Date: 20091009
  Serious: Yes (Other)
  Sender: FDA-Public Use
  Company Number: None

PATIENT
  Sex: Female
  Weight: 77.1115 kg

DRUGS (3)
  1. LISINOPRIL [Suspect]
     Indication: HYPERTENSION
     Dosage: 40 MG DAILY PO
     Route: 048
     Dates: start: 20090117, end: 20090117
  2. HYDROCHLORATHIAZIDE [Concomitant]
  3. NEXIUM [Concomitant]

REACTIONS (2)
  - HYPERTENSION [None]
  - PRODUCT SUBSTITUTION ISSUE [None]
